FAERS Safety Report 17543608 (Version 2)
Quarter: 2021Q2

REPORT INFORMATION
  Report Type: Spontaneous
  Country: US (occurrence: US)
  Receive Date: 20200316
  Receipt Date: 20210614
  Transmission Date: 20210716
  Serious: Yes (Death, Other)
  Sender: FDA-Public Use
  Company Number: US-SA-2020SA062067

PATIENT
  Age: 79 Year
  Sex: Female

DRUGS (1)
  1. ZANTAC [Suspect]
     Active Substance: RANITIDINE HYDROCHLORIDE
     Dosage: 150 MG, BID
     Route: 065
     Dates: start: 2010, end: 201910

REACTIONS (4)
  - Hepatic cancer stage IV [Unknown]
  - Pain [Not Recovered/Not Resolved]
  - Neoplasm malignant [Fatal]
  - Anxiety [Unknown]

NARRATIVE: CASE EVENT DATE: 201802
